FAERS Safety Report 9231007 (Version 1)
Quarter: 2013Q2

REPORT INFORMATION
  Report Type: Spontaneous
  Country: US (occurrence: US)
  Receive Date: 20130415
  Receipt Date: 20130415
  Transmission Date: 20140414
  Serious: Yes (Other)
  Sender: FDA-Public Use
  Company Number: US-JNJFOC-20130403149

PATIENT
  Age: 43 Year
  Sex: Male
  Weight: 154.22 kg

DRUGS (4)
  1. REMICADE [Suspect]
     Indication: SWEAT GLAND DISORDER
     Dosage: 9 VIALS. SOLUTION
     Route: 042
     Dates: start: 200301, end: 201111
  2. RIFAMPIN [Concomitant]
     Indication: SKIN DISORDER
     Route: 065
     Dates: start: 201302
  3. DOXYCYCLINE [Concomitant]
     Indication: SKIN DISORDER
     Route: 065
     Dates: start: 201302, end: 2013
  4. CLINDAMYCIN [Concomitant]
     Indication: SKIN DISORDER
     Route: 065
     Dates: start: 201302

REACTIONS (4)
  - Cardiomegaly [Recovering/Resolving]
  - Swelling [Not Recovered/Not Resolved]
  - Hypertension [Recovering/Resolving]
  - Off label use [Unknown]
